FAERS Safety Report 9797438 (Version 2)
Quarter: 2014Q1

REPORT INFORMATION
  Report Type: Spontaneous
  Country: US (occurrence: None)
  Receive Date: 20131231
  Receipt Date: 20140122
  Transmission Date: 20141002
  Serious: Yes (Other)
  Sender: FDA-Public Use
  Company Number: AUR-APL-2013-10804

PATIENT
  Sex: Male

DRUGS (1)
  1. CLOPIDOGREL [Suspect]
     Indication: ANTICOAGULANT THERAPY
     Dosage: 1 DOSAGE FORMS  (1 DOSAGE FORMS, 1 IN 1 D), ORAL
     Route: 048
     Dates: start: 2013

REACTIONS (2)
  - Retinal haemorrhage [None]
  - Astigmatism [None]
